FAERS Safety Report 10722981 (Version 3)
Quarter: 2015Q4

REPORT INFORMATION
  Report Type: Spontaneous
  Country: GB (occurrence: GB)
  Receive Date: 20150120
  Receipt Date: 20151027
  Transmission Date: 20160304
  Serious: Yes (Other)
  Sender: FDA-Public Use
  Company Number: PHFR2015GB000763

PATIENT
  Sex: Male

DRUGS (2)
  1. DIOVAN [Suspect]
     Active Substance: VALSARTAN
     Dosage: 160 MG, UNK
     Route: 065
  2. DIOVAN [Suspect]
     Active Substance: VALSARTAN
     Indication: HYPERTENSION
     Dosage: 80 MG, UNK
     Route: 065

REACTIONS (15)
  - Anosmia [Unknown]
  - Ageusia [Unknown]
  - Heart rate increased [Recovering/Resolving]
  - Arthritis [Unknown]
  - Flushing [Unknown]
  - Back pain [Unknown]
  - Neuropathy peripheral [Unknown]
  - Vitreous disorder [Unknown]
  - Blood pressure increased [Recovering/Resolving]
  - Pigmentation disorder [Unknown]
  - Feeling cold [Unknown]
  - Neck pain [Unknown]
  - Burning sensation [Unknown]
  - Vitreous floaters [Unknown]
  - Drug ineffective [Unknown]
